FAERS Safety Report 10566460 (Version 1)
Quarter: 2014Q4

REPORT INFORMATION
  Report Type: Spontaneous
  Country: DE (occurrence: DE)
  Receive Date: 20141105
  Receipt Date: 20141105
  Transmission Date: 20150529
  Serious: Yes (Other)
  Sender: FDA-Public Use
  Company Number: GXKR2014DE004068

PATIENT

DRUGS (4)
  1. CITALOPRAM [Suspect]
     Active Substance: CITALOPRAM HYDROBROMIDE
     Indication: DEPRESSION
     Dosage: UKN, 0.-35.6 GW
     Route: 048
     Dates: start: 20120929, end: 20130607
  2. AMITRIPTYLIN [Concomitant]
     Active Substance: AMITRIPTYLINE
     Indication: DEPRESSION
     Dosage: UNK MG, UNK, 0.-9. GW
     Route: 048
  3. QUETIAPINE [Suspect]
     Active Substance: QUETIAPINE
     Indication: DEPRESSION
     Dosage: UNK MG, 0.-35.6 GW
     Route: 048
     Dates: start: 20120929, end: 20130607
  4. MIRTAZAPINE. [Suspect]
     Active Substance: MIRTAZAPINE
     Indication: DEPRESSION
     Dosage: UNK MG, UNK, 0.-35.6 MG
     Route: 048
     Dates: start: 20120929, end: 20130607

REACTIONS (1)
  - Gestational diabetes [Recovered/Resolved]
